FAERS Safety Report 9669234 (Version 1)
Quarter: 2013Q4

REPORT INFORMATION
  Report Type: Spontaneous
  Country: IT (occurrence: IT)
  Receive Date: 20131105
  Receipt Date: 20131105
  Transmission Date: 20140711
  Serious: Yes (Hospitalization)
  Sender: FDA-Public Use
  Company Number: IT-TEVA-440216ISR

PATIENT
  Age: 57 Year
  Sex: Male

DRUGS (2)
  1. AMOXICILLIN + CLAVULANIC ACID [Suspect]
     Indication: PERIODONTAL DISEASE
     Dosage: AMOXICILLIN 875/CLAVULANIC ACID /125MG PILL
     Route: 065
  2. ATORVASTATIN [Concomitant]
     Route: 065

REACTIONS (1)
  - Kounis syndrome [Recovered/Resolved]
